FAERS Safety Report 4280224-7 (Version None)
Quarter: 2004Q1

REPORT INFORMATION
  Report Type: 
  Country: None (occurrence: None)
  Receive Date: 20040126
  Receipt Date: 20040112
  Transmission Date: 20041129
  Serious: Yes (Hospitalization, Other)
  Sender: FDA-Public Use
  Company Number: 2004002222

PATIENT
  Age: 54 Year
  Sex: Female

DRUGS (8)
  1. ZOLOFT [Suspect]
     Indication: DEPRESSION
     Dosage: 100 MG (DAILY), ORAL
     Route: 048
  2. LISINOPRIL [Concomitant]
  3. DIGOXIN [Concomitant]
  4. FUROSEMIDE [Concomitant]
  5. CARVEDILOL [Concomitant]
  6. ATORVASTATIN (ATORVASTATIN) [Concomitant]
  7. AMLODIPINE BESYLATE [Concomitant]
  8. INSULIN [Concomitant]

REACTIONS (2)
  - ANXIETY [None]
  - CARDIAC FAILURE CONGESTIVE [None]
